FAERS Safety Report 9852061 (Version 5)
Quarter: 2015Q1

REPORT INFORMATION
  Report Type: Spontaneous
  Country: US (occurrence: None)
  Receive Date: 20140127
  Receipt Date: 20150306
  Transmission Date: 20150721
  Serious: Yes (Hospitalization, Other)
  Sender: FDA-Public Use
  Company Number: ADR-2014-00097

PATIENT
  Age: 66 Year
  Sex: Female

DRUGS (8)
  1. BACLOFEN. [Suspect]
     Active Substance: BACLOFEN
     Indication: PAIN
     Dosage: 60.08 MG/DAY
  2. VALIUM [Suspect]
     Active Substance: DIAZEPAM
  3. OXYCODONE [Suspect]
     Active Substance: OXYCODONE
     Dosage: EVERY 6 HOURS/AS NEEDED
  4. MEDICATIONS TO COME OFF OF NARCOTICS [Suspect]
     Active Substance: UNSPECIFIED INGREDIENT
  5. BACLOFEN (ORAL) [Suspect]
     Active Substance: BACLOFEN
     Dosage: AS NEEDED
  6. DILAUDID [Suspect]
     Active Substance: HYDROMORPHONE HYDROCHLORIDE
     Dosage: 3.004 MG/DAY
  7. DESTRON (ORAL) [Concomitant]
  8. OXYCONTIN (ORAL/PILL) [Concomitant]

REACTIONS (23)
  - Back pain [None]
  - Lung disorder [None]
  - Burning sensation [None]
  - Medical device complication [None]
  - Arthralgia [None]
  - Localised intraabdominal fluid collection [None]
  - Nausea [None]
  - Pain in extremity [None]
  - Spinal column stenosis [None]
  - No therapeutic response [None]
  - Inadequate analgesia [None]
  - Motion sickness [None]
  - Weight increased [None]
  - Dyskinesia [None]
  - Abdominal pain [None]
  - Fractured coccyx [None]
  - Neoplasm [None]
  - Intervertebral disc degeneration [None]
  - Weight decreased [None]
  - Erythema [None]
  - Gastrointestinal disorder [None]
  - Vomiting [None]
  - Intervertebral disc protrusion [None]

NARRATIVE: CASE EVENT DATE: 20110208
